FAERS Safety Report 11679256 (Version 3)
Quarter: 2015Q4

REPORT INFORMATION
  Report Type: Spontaneous
  Country: US (occurrence: US)
  Receive Date: 20151027
  Receipt Date: 20151110
  Transmission Date: 20160304
  Serious: No
  Sender: FDA-Public Use
  Company Number: US-ELI_LILLY_AND_COMPANY-US201007007646

PATIENT
  Age: 88 Year
  Sex: Female

DRUGS (5)
  1. FORTEO [Suspect]
     Active Substance: TERIPARATIDE
     Indication: OSTEOPOROSIS
     Dosage: 20 UG, DAILY (1/D)
     Route: 058
     Dates: start: 201003
  2. FORTEO [Suspect]
     Active Substance: TERIPARATIDE
     Dosage: 20 UG, QD
     Route: 058
  3. FORTEO [Suspect]
     Active Substance: TERIPARATIDE
     Dosage: 20 UG, QD
     Route: 058
  4. FORTEO [Suspect]
     Active Substance: TERIPARATIDE
     Dosage: 20 UG, DAILY (1/D)
     Route: 058
  5. FORTEO [Suspect]
     Active Substance: TERIPARATIDE
     Dosage: 20 UG, QD
     Route: 058

REACTIONS (27)
  - Foot fracture [Unknown]
  - Musculoskeletal pain [Not Recovered/Not Resolved]
  - Gait disturbance [Recovered/Resolved]
  - Neck pain [Unknown]
  - Hypoaesthesia [Unknown]
  - Injection site erythema [Unknown]
  - Skin disorder [Recovered/Resolved]
  - Pain in extremity [Unknown]
  - Large intestine polyp [Unknown]
  - Bone pain [Unknown]
  - Fatigue [Unknown]
  - Arthralgia [Unknown]
  - Pain in jaw [Not Recovered/Not Resolved]
  - Hypoacusis [Unknown]
  - Pain [Not Recovered/Not Resolved]
  - Chest pain [Unknown]
  - Joint swelling [Unknown]
  - Tooth infection [Recovered/Resolved]
  - Breast mass [Recovering/Resolving]
  - Osteitis [Unknown]
  - Tinnitus [Recovered/Resolved]
  - Dysstasia [Unknown]
  - Upper extremity mass [Unknown]
  - Fall [Recovered/Resolved]
  - Back pain [Unknown]
  - Musculoskeletal pain [Unknown]
  - Malaise [Unknown]

NARRATIVE: CASE EVENT DATE: 20110905
